FAERS Safety Report 6166732-2 (Version None)
Quarter: 2009Q2

REPORT INFORMATION
  Report Type: 
  Country: None (occurrence: None)
  Receive Date: 20090424
  Receipt Date: 20090109
  Transmission Date: 20091009
  Serious: Yes (Hospitalization)
  Sender: FDA-Public Use
  Company Number: SE-PFIZER INC-2009156821

PATIENT

DRUGS (14)
  1. BLINDED *PLACEBO [Suspect]
     Indication: CARDIAC FAILURE
     Dosage: UNK
     Route: 048
     Dates: start: 20081210
  2. BLINDED EPLERENONE [Suspect]
     Indication: CARDIAC FAILURE
     Dosage: UNK
     Route: 048
     Dates: start: 20081210
  3. OMEPRAZOL [Concomitant]
     Dosage: UNK
     Route: 048
     Dates: start: 20080722
  4. LACTULOSE [Concomitant]
     Dosage: UNK
     Route: 048
     Dates: start: 20080728
  5. WARFARIN SODIUM [Concomitant]
     Dosage: UNK
     Route: 048
     Dates: start: 20080925
  6. FUROSEMIDE [Concomitant]
     Dosage: UNK
     Route: 048
     Dates: start: 20080925
  7. METOPROLOL SUCCINATE [Concomitant]
     Dosage: UNK
     Route: 048
     Dates: start: 20080704
  8. ENALAPRIL [Concomitant]
     Route: 048
     Dates: start: 20080704
  9. CANDESARTAN [Concomitant]
     Dosage: UNK
     Route: 048
     Dates: start: 20081128
  10. SIMVASTATIN [Concomitant]
     Dosage: UNK
     Route: 048
     Dates: start: 20080704
  11. PENICILLINE [Concomitant]
     Dosage: UNK
     Route: 048
     Dates: start: 20080913
  12. CITALOPRAM HYDROBROMIDE [Concomitant]
     Dosage: UNK
     Route: 048
     Dates: start: 20080728
  13. GLYCERYL TRINITRATE [Concomitant]
     Dosage: UNK
     Route: 048
     Dates: start: 20080716
  14. PARACETAMOL [Concomitant]
     Dosage: UNK
     Route: 048
     Dates: start: 20080818

REACTIONS (1)
  - URINARY TRACT INFECTION [None]
